FAERS Safety Report 21089119 (Version 2)
Quarter: 2022Q3

REPORT INFORMATION
  Report Type: Report from Study
  Country: US (occurrence: US)
  Receive Date: 20220715
  Receipt Date: 20220729
  Transmission Date: 20221027
  Serious: No
  Sender: FDA-Public Use
  Company Number: US-BIOVITRUM-2022US07712

PATIENT
  Age: 50 Year
  Sex: Female

DRUGS (1)
  1. DOPTELET [Suspect]
     Active Substance: AVATROMBOPAG MALEATE
     Indication: Immune thrombocytopenia

REACTIONS (2)
  - Malaise [Recovering/Resolving]
  - Platelet count increased [Recovered/Resolved]

NARRATIVE: CASE EVENT DATE: 20220606
